FAERS Safety Report 10030962 (Version 2)
Quarter: 2014Q2

REPORT INFORMATION
  Report Type: Spontaneous
  Country: US (occurrence: US)
  Receive Date: 20140324
  Receipt Date: 20140402
  Transmission Date: 20141212
  Serious: No
  Sender: FDA-Public Use
  Company Number: US-009507513-1403USA009326

PATIENT
  Age: 19 Year
  Sex: Female

DRUGS (2)
  1. NEXPLANON [Suspect]
     Indication: CONTRACEPTION
     Dosage: CONCENTRATION 68MG, 1 ROD
     Route: 059
     Dates: start: 20140314, end: 20140314
  2. NEXPLANON [Suspect]
     Dosage: 1 ROD
     Route: 059
     Dates: start: 20140314

REACTIONS (3)
  - Discomfort [Recovered/Resolved]
  - Device difficult to use [Recovered/Resolved]
  - Product quality issue [Unknown]
